FAERS Safety Report 4367333-9 (Version None)
Quarter: 2004Q2

REPORT INFORMATION
  Report Type: 
  Country: None (occurrence: None)
  Receive Date: 20040528
  Receipt Date: 20040528
  Transmission Date: 20050107
  Serious: Yes (Hospitalization)
  Sender: FDA-Public Use
  Company Number: None

PATIENT
  Age: 66 Year
  Sex: Male
  Weight: 81.6475 kg

DRUGS (8)
  1. 13-CIS RETINOIC ACID [Suspect]
     Indication: PROSTATE CANCER METASTATIC
     Dosage: 80 MG PO QD (D1-4)
     Route: 048
     Dates: start: 20030318, end: 20030611
  2. ESTRAMUSTINE [Suspect]
     Indication: PROSTATE CANCER METASTATIC
     Dosage: 840 MG PO TID (D1-5)
     Route: 048
     Dates: start: 20030318, end: 20030611
  3. ALPHA INTERFERON [Suspect]
     Indication: PROSTATE CANCER METASTATIC
     Dosage: 11MU, QD SC (D 1-4)
     Route: 058
     Dates: start: 20030318, end: 20030611
  4. DECADRON [Concomitant]
  5. CLONIDINE HCL [Concomitant]
  6. ALTACE [Concomitant]
  7. HYDROCHLOROTHIAZIDE [Concomitant]
  8. ZOLADEX [Concomitant]

REACTIONS (10)
  - ARTHRALGIA [None]
  - BONE PAIN [None]
  - CHEST WALL PAIN [None]
  - MALIGNANT NEOPLASM PROGRESSION [None]
  - METASTASES TO BONE [None]
  - METASTASES TO CENTRAL NERVOUS SYSTEM [None]
  - NAUSEA [None]
  - PAIN [None]
  - PELVIC PAIN [None]
  - VOMITING [None]
